FAERS Safety Report 12381952 (Version 3)
Quarter: 2016Q3

REPORT INFORMATION
  Report Type: Report from Study
  Country: MX (occurrence: MX)
  Receive Date: 20160518
  Receipt Date: 20160704
  Transmission Date: 20161109
  Serious: Yes (Other)
  Sender: FDA-Public Use
  Company Number: PHHY2016MX067014

PATIENT
  Age: 87 Year
  Sex: Female

DRUGS (7)
  1. COPLAVIX [Concomitant]
     Active Substance: ASPIRIN\CLOPIDOGREL BISULFATE
     Indication: HAEMORRHAGE PROPHYLAXIS
     Dosage: 1 DF, (ABOUT 4 AND 1/2 YEARS AGO) (AT NOON)
     Route: 048
  2. EUTIROX [Concomitant]
     Active Substance: LEVOTHYROXINE SODIUM
     Indication: THYROID DISORDER
     Dosage: 1 DF, (75 UG) (IN THE MORNING ,SEVERAL YEARS AGO, MORE THAN 6 YEARS)
     Route: 065
  3. EXFORGE HCT [Suspect]
     Active Substance: AMLODIPINE BESYLATE\HYDROCHLOROTHIAZIDE\VALSARTAN
     Indication: BLOOD PRESSURE INCREASED
     Dosage: 1 DF, (10MG AMLODIPINE, 25MG HYDROCHLOROTHIAZIDE AND 320MG VALSARTAN)
     Route: 048
     Dates: start: 201602
  4. EXFORGE HCT [Suspect]
     Active Substance: AMLODIPINE BESYLATE\HYDROCHLOROTHIAZIDE\VALSARTAN
     Dosage: 0.5 DF, (10 MG AMLODIPINE, 25MG HYDROCHLOROTHIAZIDE AND 320MG VALSARTAN)
     Route: 048
     Dates: start: 201603
  5. PANTOPRAZOLE [Concomitant]
     Active Substance: PANTOPRAZOLE SODIUM
     Indication: GASTRITIS
     Dosage: 2 DF, (1 IN THE MORNING 1 AT THE NIGHT, ABOUT 10 YEARS AGO)
     Route: 065
  6. LAXOYA//SODIUM PICOSULFATE [Concomitant]
     Indication: PRODUCT USED FOR UNKNOWN INDICATION
     Dosage: 2 DF, (AT NIGHT, MORE THAN 6 MONTHS AGO)
     Route: 065
  7. COPLAVIX [Concomitant]
     Active Substance: ASPIRIN\CLOPIDOGREL BISULFATE
     Indication: GAIT DISTURBANCE

REACTIONS (6)
  - Bone density decreased [Recovering/Resolving]
  - Wrong technique in product usage process [Not Recovered/Not Resolved]
  - Malaise [Unknown]
  - Insomnia [Recovering/Resolving]
  - Abasia [Unknown]
  - Blood pressure decreased [Recovering/Resolving]

NARRATIVE: CASE EVENT DATE: 201603
